APPROVED DRUG PRODUCT: INDERAL
Active Ingredient: PROPRANOLOL HYDROCHLORIDE
Strength: 60MG **Federal Register determination that product was not discontinued or withdrawn for safety or effectiveness reasons**
Dosage Form/Route: TABLET;ORAL
Application: N016418 | Product #009
Applicant: WYETH PHARMACEUTICALS LLC
Approved: Oct 18, 1982 | RLD: Yes | RS: No | Type: DISCN